FAERS Safety Report 7147952-7 (Version None)
Quarter: 2010Q4

REPORT INFORMATION
  Report Type: 
  Country: None (occurrence: None)
  Receive Date: 20101206
  Receipt Date: 20101206
  Transmission Date: 20110411
  Serious: No
  Sender: FDA-Public Use
  Company Number: None

PATIENT
  Sex: Female

DRUGS (1)
  1. MIRAPEX [Suspect]
     Indication: RESTLESS LEGS SYNDROME
     Dosage: 1 MG TID ORAL OVER 9 YEARS
     Route: 048

REACTIONS (3)
  - DRUG EFFECT DECREASED [None]
  - DYSKINESIA [None]
  - INSOMNIA [None]
